FAERS Safety Report 7650834-5 (Version None)
Quarter: 2011Q3

REPORT INFORMATION
  Report Type: 
  Country: None (occurrence: None)
  Receive Date: 20110727
  Receipt Date: 20110719
  Transmission Date: 20111222
  Serious: Yes (Hospitalization)
  Sender: FDA-Public Use
  Company Number: 2010SP063124

PATIENT
  Age: 2 Year
  Sex: Male
  Weight: 12.4 kg

DRUGS (28)
  1. CCNU [Concomitant]
  2. FLAGYL [Concomitant]
  3. MELPHALAN HYDROCHLORIDE [Concomitant]
  4. TEMODAL [Suspect]
     Indication: NEOPLASM
     Dosage: 70,150,80, MG, QD, PO
     Route: 048
     Dates: start: 20110214, end: 20110216
  5. TEMODAL [Suspect]
     Indication: NEOPLASM
     Dosage: 70,150,80, MG, QD, PO
     Route: 048
     Dates: start: 20101130, end: 20101130
  6. TEMODAL [Suspect]
     Indication: NEOPLASM
     Dosage: 70,150,80, MG, QD, PO
     Route: 048
     Dates: start: 20110218, end: 20110219
  7. TEMODAL [Suspect]
     Indication: NEOPLASM
     Dosage: 70,150,80, MG, QD, PO
     Route: 048
     Dates: start: 20110411, end: 20110415
  8. TEMODAL [Suspect]
     Indication: NEOPLASM
     Dosage: 70,150,80, MG, QD, PO
     Route: 048
     Dates: start: 20101123, end: 20101125
  9. TEMODAL [Suspect]
     Indication: NEOPLASM
     Dosage: 70,150,80, MG, QD, PO
     Route: 048
     Dates: start: 20110117, end: 20110121
  10. ETOPOSIDE [Concomitant]
  11. ETOPOSIDE [Concomitant]
  12. ACETAMINOPHEN [Concomitant]
  13. ETOPOSIDE [Concomitant]
  14. TOPOTECAN [Suspect]
     Indication: NEOPLASM
     Dosage: 0.36; 0.4 MG, QD, IV
     Route: 042
     Dates: start: 20110411, end: 20110415
  15. TOPOTECAN [Suspect]
     Indication: NEOPLASM
     Dosage: 0.36; 0.4 MG, QD, IV
     Route: 042
     Dates: start: 20110117, end: 20110121
  16. TOPOTECAN [Suspect]
     Indication: NEOPLASM
     Dosage: 0.36; 0.4 MG, QD, IV
     Route: 042
     Dates: start: 20110218, end: 20110219
  17. TOPOTECAN [Suspect]
     Indication: NEOPLASM
     Dosage: 0.36; 0.4 MG, QD, IV
     Route: 042
     Dates: start: 20101130, end: 20101130
  18. TOPOTECAN [Suspect]
     Indication: NEOPLASM
     Dosage: 0.36; 0.4 MG, QD, IV
     Route: 042
     Dates: start: 20101222, end: 20101226
  19. TOPOTECAN [Suspect]
     Indication: NEOPLASM
     Dosage: 0.36; 0.4 MG, QD, IV
     Route: 042
     Dates: start: 20110214, end: 20110216
  20. TOPOTECAN [Suspect]
     Indication: NEOPLASM
     Dosage: 0.36; 0.4 MG, QD, IV
     Route: 042
     Dates: start: 20101123, end: 20101125
  21. CARBOPLATIN [Concomitant]
  22. ETOPOSIDE [Concomitant]
  23. IFOSFAMIDE [Concomitant]
  24. CARBOPLATIN [Concomitant]
  25. DEPAKENE [Concomitant]
  26. CARBOPLATIN [Concomitant]
  27. PREDNISOLONE [Concomitant]
  28. CLONAZEPAM [Concomitant]

REACTIONS (16)
  - ENTEROCOCCUS TEST POSITIVE [None]
  - PSEUDOMONAS TEST POSITIVE [None]
  - HEART RATE INCREASED [None]
  - STAPHYLOCOCCAL SKIN INFECTION [None]
  - HAEMOGLOBIN DECREASED [None]
  - WHITE BLOOD CELL COUNT DECREASED [None]
  - DEVICE RELATED INFECTION [None]
  - ASPARTATE AMINOTRANSFERASE INCREASED [None]
  - VIITH NERVE PARALYSIS [None]
  - INFLUENZA [None]
  - STAPHYLOCOCCUS TEST POSITIVE [None]
  - ESCHERICHIA TEST POSITIVE [None]
  - FEBRILE NEUTROPENIA [None]
  - CONVULSION [None]
  - MOTOR DYSFUNCTION [None]
  - BLOOD PRESSURE DECREASED [None]
